FAERS Safety Report 5421749-8 (Version None)
Quarter: 2007Q3

REPORT INFORMATION
  Report Type: 
  Country: None (occurrence: None)
  Receive Date: 20070821
  Receipt Date: 20070810
  Transmission Date: 20080115
  Serious: Yes (Hospitalization)
  Sender: FDA-Public Use
  Company Number: FR-PFIZER INC-2007066977

PATIENT
  Sex: Male

DRUGS (7)
  1. ZOLOFT [Suspect]
     Route: 048
  2. COUMADIN [Suspect]
     Indication: DEEP VEIN THROMBOSIS
     Dosage: DAILY DOSE:9MG
     Route: 048
     Dates: start: 20020101, end: 20070327
  3. PYOSTACINE [Suspect]
     Route: 048
     Dates: start: 20070102, end: 20070109
  4. SERETIDE [Suspect]
     Route: 055
     Dates: start: 20070102, end: 20070109
  5. DOMPERIDONE [Suspect]
     Route: 048
     Dates: start: 20070102, end: 20070109
  6. MELILOT [Concomitant]
     Route: 048
  7. HEPARIN [Concomitant]
     Route: 048

REACTIONS (1)
  - PLEURAL HAEMORRHAGE [None]
